FAERS Safety Report 7761971-9 (Version None)
Quarter: 2011Q3

REPORT INFORMATION
  Report Type: 
  Country: None (occurrence: None)
  Receive Date: 20110920
  Receipt Date: 20110912
  Transmission Date: 20111222
  Serious: Yes (Death, Other)
  Sender: FDA-Public Use
  Company Number: US-BAYER-200939859NA

PATIENT
  Age: 62 Year
  Sex: Female
  Weight: 70 kg

DRUGS (20)
  1. TRASYLOL [Suspect]
     Dosage: UNK
  2. TRASYLOL [Suspect]
     Indication: CORONARY ARTERY BYPASS
     Route: 042
     Dates: start: 20050318
  3. TRASYLOL [Suspect]
  4. MICARDIS [Concomitant]
  5. RED BLOOD CELLS [Concomitant]
     Dosage: UNK
     Dates: start: 20050318
  6. TRASYLOL [Suspect]
     Indication: MITRAL VALVE REPAIR
     Dosage: LOADING DOSE OF 200 ML OVER 30 MINUTES, THEN 50 ML/HR
     Route: 042
     Dates: start: 20050318, end: 20050318
  7. LOPRESSOR [Concomitant]
     Dosage: 12.5 MG TWICE DAILY
     Route: 048
  8. MILRINONE [Concomitant]
     Dosage: UNK
     Dates: start: 20050318
  9. HEPARIN [Concomitant]
     Dosage: 25,000 UNITS
     Route: 042
     Dates: start: 20050318
  10. LISINOPRIL [Concomitant]
     Dosage: 10 MG Q DAY
     Route: 048
  11. NITROGLYCERIN [Concomitant]
     Dosage: 10 MCG/MIN
     Route: 042
  12. NITROGLYCERIN [Concomitant]
     Dosage: 0.4 MG, PRN
  13. INSULIN [Concomitant]
     Dosage: 10 UNITS
     Route: 042
     Dates: start: 20050318
  14. TRASYLOL [Suspect]
  15. PROTAMINE [Concomitant]
     Dosage: 50MG
     Route: 042
     Dates: start: 20050318
  16. MANNITOL [Concomitant]
     Dosage: UNK
     Route: 042
     Dates: start: 20050318
  17. TRASYLOL [Suspect]
  18. EPINEPHRINE [Concomitant]
     Dosage: UNK
     Dates: start: 20050318
  19. PLATELETS [Concomitant]
     Dosage: UNK
     Dates: start: 20050318
  20. PLASMA [Concomitant]

REACTIONS (13)
  - RENAL INJURY [None]
  - PAIN [None]
  - FEAR [None]
  - ANHEDONIA [None]
  - MULTI-ORGAN FAILURE [None]
  - INJURY [None]
  - RENAL IMPAIRMENT [None]
  - UNEVALUABLE EVENT [None]
  - RENAL FAILURE [None]
  - DEATH [None]
  - EMOTIONAL DISTRESS [None]
  - STRESS [None]
  - ANXIETY [None]
